FAERS Safety Report 15634779 (Version 4)
Quarter: 2019Q1

REPORT INFORMATION
  Report Type: Spontaneous
  Country: US (occurrence: US)
  Receive Date: 20181119
  Receipt Date: 20190130
  Transmission Date: 20190417
  Serious: Yes (Death)
  Sender: FDA-Public Use
  Company Number: US-PFIZER INC-2018207204

PATIENT
  Age: 4 Year
  Sex: Male

DRUGS (3)
  1. IBRANCE [Suspect]
     Active Substance: PALBOCICLIB
     Indication: BRAIN NEOPLASM
     Dosage: 75 MG, CYCLIC [1-4,6,8 OF 28 DAY CYCLES]
     Route: 048
     Dates: start: 20180101, end: 20180706
  2. EVEROLIMUS. [Concomitant]
     Active Substance: EVEROLIMUS
     Indication: NEOPLASM
     Dosage: 4 MG, UNK
     Route: 048
     Dates: start: 20180101, end: 20180706
  3. ATIVAN [Concomitant]
     Active Substance: LORAZEPAM
     Indication: SEIZURE
     Dosage: 1 MG, 4X/DAY (Q6HR)
     Route: 048
     Dates: end: 20180706

REACTIONS (3)
  - Neoplasm progression [Fatal]
  - Product use in unapproved indication [Unknown]
  - Seizure [Fatal]

NARRATIVE: CASE EVENT DATE: 20180703
